FAERS Safety Report 19675924 (Version 1)
Quarter: 2021Q3

REPORT INFORMATION
  Report Type: Report from Study
  Country: None (occurrence: GR)
  Receive Date: 20210809
  Receipt Date: 20210809
  Transmission Date: 20211014
  Serious: Yes (Death)
  Sender: FDA-Public Use
  Company Number: GR-ABBVIE-21K-066-4029702-00

PATIENT
  Age: 75 Year
  Sex: Male
  Weight: 76 kg

DRUGS (7)
  1. SUPRESSIN [Concomitant]
     Indication: PRODUCT USED FOR UNKNOWN INDICATION
     Dosage: 1.5 BOTTLE PER DAY
     Route: 050
  2. ALMERZAC [Concomitant]
     Indication: PRODUCT USED FOR UNKNOWN INDICATION
     Dosage: TWICE, DAILY (IN THE MORNING)
     Route: 048
  3. QUEPIN [Concomitant]
     Active Substance: QUETIAPINE
     Indication: ANXIETY DISORDER
     Route: 048
  4. RACTILEN [Concomitant]
     Indication: PRODUCT USED FOR UNKNOWN INDICATION
     Dosage: 1 X 1 (IN THE MORNING)
     Route: 048
  5. DUODOPA [Suspect]
     Active Substance: CARBIDOPA\LEVODOPA
  6. DUODOPA [Suspect]
     Active Substance: CARBIDOPA\LEVODOPA
     Indication: PARKINSON^S DISEASE
     Dosage: MORNING DOSE: 9.0 ML; CONTINUOUS RATE: 2.4 ML/H; EXTRA DOSE: 1.0 ML
     Route: 050
     Dates: start: 20200303
  7. DEMOREN [Concomitant]
     Active Substance: ALBUTEROL SULFATE\IPRATROPIUM BROMIDE
     Indication: PRODUCT USED FOR UNKNOWN INDICATION
     Dosage: TWICE DAILY (MORNING  ? NIGHT)
     Route: 055

REACTIONS (2)
  - Cardiac arrest [Fatal]
  - Pyrexia [Unknown]

NARRATIVE: CASE EVENT DATE: 20210803
